FAERS Safety Report 4366019-4 (Version None)
Quarter: 2004Q2

REPORT INFORMATION
  Report Type: 
  Country: None (occurrence: None)
  Receive Date: 20040524
  Receipt Date: 20040514
  Transmission Date: 20050107
  Serious: Yes (Other)
  Sender: FDA-Public Use
  Company Number: 7986

PATIENT
  Age: 49 Year
  Sex: Female

DRUGS (1)
  1. PACLITAXEL [Suspect]
     Indication: BREAST CANCER
     Dosage: 175 MG/M2 PER _CYCLE

REACTIONS (5)
  - DERMATITIS [None]
  - HYPERCHROMASIA [None]
  - HYPERTHERMIA [None]
  - MALIGNANT NEOPLASM PROGRESSION [None]
  - SKIN DESQUAMATION [None]
